FAERS Safety Report 16971333 (Version 2)
Quarter: 2019Q4

REPORT INFORMATION
  Report Type: Spontaneous
  Country: AU (occurrence: AU)
  Receive Date: 20191029
  Receipt Date: 20191113
  Transmission Date: 20200122
  Serious: Yes (Hospitalization, Other)
  Sender: FDA-Public Use
  Company Number: AU-ASTRAZENECA-2019SF52345

PATIENT
  Age: 72 Year
  Sex: Female

DRUGS (1)
  1. IRESSA [Suspect]
     Active Substance: GEFITINIB
     Route: 048

REACTIONS (5)
  - Acquired gene mutation [Unknown]
  - Metastases to spine [Unknown]
  - Malignant neoplasm progression [Unknown]
  - Haemoptysis [Recovered/Resolved]
  - Metastases to lung [Unknown]

NARRATIVE: CASE EVENT DATE: 201901
